FAERS Safety Report 7349956-8 (Version None)
Quarter: 2011Q1

REPORT INFORMATION
  Report Type: 
  Country: None (occurrence: None)
  Receive Date: 20110314
  Receipt Date: 20110303
  Transmission Date: 20110831
  Serious: Yes (Hospitalization)
  Sender: FDA-Public Use
  Company Number: FR-BRISTOL-MYERS SQUIBB COMPANY-15593437

PATIENT
  Age: 72 Year
  Sex: Male

DRUGS (3)
  1. ZANIDIP [Suspect]
     Dosage: TABLET
     Route: 048
  2. COAPROVEL TABS 300MG/12.5MG [Suspect]
     Dosage: 1DF=G/12.5MG. FOR YEARS.
     Route: 048
  3. METFORMIN HCL [Suspect]
     Route: 048

REACTIONS (1)
  - INTERSTITIAL LUNG DISEASE [None]
